FAERS Safety Report 5534757-3 (Version None)
Quarter: 2007Q4

REPORT INFORMATION
  Report Type: 
  Country: None (occurrence: None)
  Receive Date: 20071130
  Receipt Date: 20071119
  Transmission Date: 20080405
  Serious: Yes (Hospitalization, Other)
  Sender: FDA-Public Use
  Company Number: GXKR2007BE09944

PATIENT
  Age: 63 Year
  Sex: Male

DRUGS (4)
  1. METHYLPREDNISOLONE [Suspect]
     Indication: COGNITIVE DISORDER
     Dosage: 64 MG, QD, ORAL
     Route: 048
  2. METHOTREXATE [Suspect]
     Indication: COGNITIVE DISORDER
  3. PREDNISOLONE [Suspect]
     Indication: COGNITIVE DISORDER
  4. IMMUNOGLOBULINS(IMMUNOGLOBULINS) [Suspect]
     Indication: COGNITIVE DISORDER
     Dosage: INTRAVENOUS
     Route: 042

REACTIONS (5)
  - COGNITIVE DISORDER [None]
  - CONDITION AGGRAVATED [None]
  - MAJOR DEPRESSION [None]
  - MYOCLONUS [None]
  - PSYCHOTIC DISORDER [None]
